FAERS Safety Report 8610923-5 (Version None)
Quarter: 2012Q3

REPORT INFORMATION
  Report Type: 
  Country: None (occurrence: None)
  Receive Date: 20120808
  Receipt Date: 20120725
  Transmission Date: 20120928
  Serious: Yes (Death, Hospitalization, Other)
  Sender: FDA-Public Use
  Company Number: 2012MA009121

PATIENT
  Age: 50 Year
  Sex: Female

DRUGS (8)
  1. IBUPROFEN [Suspect]
     Indication: COMPLETED SUICIDE
  2. FLUOXETINE [Suspect]
     Indication: COMPLETED SUICIDE
  3. KADIAN [Suspect]
     Indication: COMPLETED SUICIDE
  4. FEVERALL [Suspect]
     Indication: COMPLETED SUICIDE
  5. ALPRAZOLAM [Suspect]
     Indication: COMPLETED SUICIDE
  6. OXYCODONE HCL [Suspect]
     Indication: COMPLETED SUICIDE
  7. NAPROXEN [Suspect]
     Indication: COMPLETED SUICIDE
  8. ESZOPICLONE [Suspect]
     Indication: COMPLETED SUICIDE

REACTIONS (12)
  - UNRESPONSIVE TO STIMULI [None]
  - BLOOD LACTIC ACID INCREASED [None]
  - ECCHYMOSIS [None]
  - COMPLETED SUICIDE [None]
  - AMMONIA INCREASED [None]
  - HEPATIC NECROSIS [None]
  - ANURIA [None]
  - APNOEA [None]
  - HYPOTENSION [None]
  - HEPATIC STEATOSIS [None]
  - TOXICITY TO VARIOUS AGENTS [None]
  - BLOOD CREATINE PHOSPHOKINASE INCREASED [None]
